APPROVED DRUG PRODUCT: ADENOSCAN
Active Ingredient: ADENOSINE
Strength: 90MG/30ML (3MG/ML) **Federal Register determination that product was not discontinued or withdrawn for safety or effectiveness reasons**
Dosage Form/Route: SOLUTION;INTRAVENOUS
Application: N020059 | Product #002
Applicant: ASTELLAS PHARMA US INC
Approved: May 18, 1995 | RLD: Yes | RS: No | Type: DISCN